FAERS Safety Report 7531248-5 (Version None)
Quarter: 2011Q2

REPORT INFORMATION
  Report Type: 
  Country: None (occurrence: None)
  Receive Date: 20110608
  Receipt Date: 20110118
  Transmission Date: 20111010
  Serious: Yes (Hospitalization, Other)
  Sender: FDA-Public Use
  Company Number: US-BAYER-201026510NA

PATIENT
  Age: 23 Year
  Sex: Female
  Weight: 102.4 kg

DRUGS (6)
  1. YAZ [Suspect]
     Dosage: UNK
     Dates: start: 20070730, end: 20070824
  2. PHENTERMINE [Concomitant]
     Dosage: UNK
     Dates: start: 20070601, end: 20070801
  3. LOVENOX [Concomitant]
  4. YAZ [Suspect]
     Indication: CONTRACEPTION
     Route: 048
     Dates: start: 20070301, end: 20070801
  5. LEXAPRO [Concomitant]
  6. ESTROGENIC SUBSTANCE [Concomitant]

REACTIONS (4)
  - DEEP VEIN THROMBOSIS [None]
  - PAIN IN EXTREMITY [None]
  - THROMBOSIS [None]
  - PULMONARY EMBOLISM [None]
